FAERS Safety Report 6230917-7 (Version None)
Quarter: 2009Q2

REPORT INFORMATION
  Report Type: 
  Country: None (occurrence: None)
  Receive Date: 20090616
  Receipt Date: 20090610
  Transmission Date: 20091009
  Serious: Yes (Death)
  Sender: FDA-Public Use
  Company Number: PHHY2009CN22764

PATIENT
  Age: 16 Year
  Sex: Female

DRUGS (7)
  1. IMATINIB MESYLATE [Suspect]
     Indication: CHRONIC EOSINOPHILIC LEUKAEMIA
  2. CYTARABINE [Concomitant]
  3. MITOXANTRONE [Concomitant]
  4. VINCRISTINE [Concomitant]
  5. CYCLOPHOSPHAMIDE [Concomitant]
  6. METHOTREXATE [Concomitant]
  7. PREDNISONE [Concomitant]

REACTIONS (2)
  - MULTI-ORGAN FAILURE [None]
  - NO THERAPEUTIC RESPONSE [None]
